FAERS Safety Report 23517362 (Version 5)
Quarter: 2024Q2

REPORT INFORMATION
  Report Type: Spontaneous
  Country: CA (occurrence: CA)
  Receive Date: 20240213
  Receipt Date: 20240429
  Transmission Date: 20240716
  Serious: No
  Sender: FDA-Public Use
  Company Number: CA-PFIZER INC-PV202400010301

PATIENT
  Sex: Female

DRUGS (1)
  1. ABRILADA [Suspect]
     Active Substance: ADALIMUMAB-AFZB
     Dosage: SSOL 40MG/0.8ML 1X2 PFP (2 INJECTIONS WEEKLY)

REACTIONS (4)
  - Drug dose omission by device [Unknown]
  - Device malfunction [Unknown]
  - Device difficult to use [Unknown]
  - Device mechanical issue [Unknown]
